FAERS Safety Report 5222744-4 (Version None)
Quarter: 2007Q1

REPORT INFORMATION
  Report Type: 
  Country: None (occurrence: None)
  Receive Date: 20061208
  Receipt Date: 20051219
  Transmission Date: 20070707
  Serious: Yes (Other)
  Sender: FDA-Public Use
  Company Number: 2005172032

PATIENT
  Sex: Male
  Weight: 86.1834 kg

DRUGS (13)
  1. VIAGRA [Suspect]
     Indication: ERECTILE DYSFUNCTION
     Dosage: 50 MG
  2. TROGLITAZONE (TROGLITAZONE) [Suspect]
     Indication: DIABETES MELLITUS
     Dosage: 50 MG
  3. NEXIUM [Concomitant]
  4. CITALOPRAM HYDROBROMIDE [Concomitant]
  5. LIPITOR [Concomitant]
  6. METOPROLOL TARTRATE [Concomitant]
  7. GLUCOPHAGE [Concomitant]
  8. NIASPAN [Concomitant]
  9. CLIPIZIDE (GLIPIZIDE) [Concomitant]
  10. PRECOSE [Concomitant]
  11. AVANDAMET [Concomitant]
  12. AVANDIA [Concomitant]
  13. ASPIRIN [Concomitant]

REACTIONS (10)
  - BLOOD CHOLESTEROL INCREASED [None]
  - DRUG INEFFECTIVE [None]
  - ERECTILE DYSFUNCTION [None]
  - EYE PAIN [None]
  - FEELING HOT [None]
  - FLUSHING [None]
  - LIBIDO DECREASED [None]
  - MYOCARDIAL INFARCTION [None]
  - NERVE INJURY [None]
  - ORGASM ABNORMAL [None]
